FAERS Safety Report 13874864 (Version 1)
Quarter: 2017Q3

REPORT INFORMATION
  Report Type: Spontaneous
  Country: CN (occurrence: CN)
  Receive Date: 20170816
  Receipt Date: 20170816
  Transmission Date: 20171127
  Serious: Yes (Other)
  Sender: FDA-Public Use
  Company Number: CN-GILEAD-2017-0288119

PATIENT
  Age: 34 Year
  Sex: Male
  Weight: 80 kg

DRUGS (7)
  1. TIVICAY [Concomitant]
     Active Substance: DOLUTEGRAVIR SODIUM
  2. LAMIVUDINE. [Suspect]
     Active Substance: LAMIVUDINE
     Indication: HIV INFECTION
     Dosage: UNK
     Route: 048
     Dates: start: 2014, end: 201508
  3. LAMIVUDINE. [Suspect]
     Active Substance: LAMIVUDINE
     Dosage: UNK
     Route: 048
     Dates: start: 201706
  4. KIVEXA [Concomitant]
     Active Substance: ABACAVIR SULFATE\LAMIVUDINE
  5. RILPIVIRINE [Concomitant]
     Active Substance: RILPIVIRINE
  6. VIREAD [Suspect]
     Active Substance: TENOFOVIR DISOPROXIL FUMARATE
     Indication: HIV INFECTION
     Dosage: 1 DF, QD
     Route: 048
     Dates: start: 2014, end: 201508
  7. EFAVIRENZ [Suspect]
     Active Substance: EFAVIRENZ
     Indication: HIV INFECTION
     Dosage: UNK
     Route: 048
     Dates: start: 2014

REACTIONS (1)
  - Liver injury [Unknown]
